FAERS Safety Report 13972383 (Version 1)
Quarter: 2017Q3

REPORT INFORMATION
  Report Type: Spontaneous
  Country: US (occurrence: None)
  Receive Date: 20170914
  Receipt Date: 20170914
  Transmission Date: 20171128
  Serious: No
  Sender: FDA-Public Use
  Company Number: None

PATIENT
  Age: 11 Year
  Sex: Male

DRUGS (1)
  1. ORKAMBI [Suspect]
     Active Substance: IVACAFTOR\LUMACAFTOR
     Indication: CYSTIC FIBROSIS
     Dosage: 200-250 MG BID PO
     Route: 048
     Dates: start: 20170330

REACTIONS (3)
  - Abnormal faeces [None]
  - Flatulence [None]
  - Steatorrhoea [None]

NARRATIVE: CASE EVENT DATE: 20170913
